FAERS Safety Report 17747405 (Version 1)
Quarter: 2020Q2

REPORT INFORMATION
  Report Type: Spontaneous
  Country: DE (occurrence: DE)
  Receive Date: 20200505
  Receipt Date: 20200505
  Transmission Date: 20200714
  Serious: Yes (Hospitalization)
  Sender: FDA-Public Use
  Company Number: DE-PFIZER INC-2020175441

PATIENT
  Age: 46 Year
  Sex: Female

DRUGS (10)
  1. CEFUROXIM [Suspect]
     Active Substance: CEFUROXIME
     Dosage: 500 MG
     Dates: start: 20200114
  2. IBUPROFEN. [Suspect]
     Active Substance: IBUPROFEN
     Dosage: 600 MG, AS NEEDED
  3. FORXIGA [Concomitant]
     Active Substance: DAPAGLIFLOZIN
     Dosage: 10 MG, 1X/DAY (10 MG, 0-1-0-0)
  4. PANTOPRAZOL [PANTOPRAZOLE] [Concomitant]
     Active Substance: PANTOPRAZOLE
     Dosage: 40 MG, 1X/DAY (40 MG, 1-0-0-0)
  5. LEVOTHYROXINE SODIUM. [Concomitant]
     Active Substance: LEVOTHYROXINE SODIUM
     Dosage: 125 UG, 1X/DAY (125 ?G, 1-0-0-0)
  6. VENLAFAXIN [Concomitant]
     Active Substance: VENLAFAXINE HYDROCHLORIDE
     Dosage: 0.5 DF, 1X/DAY (75 MG, 0.5-0-0-0)
  7. LIRAGLUTIDE [Concomitant]
     Active Substance: LIRAGLUTIDE
     Dosage: 1.2 MG, 1X/DAY (1.2 MG, 1-0-0-0)
     Route: 058
  8. METFORMIN [Concomitant]
     Active Substance: METFORMIN HYDROCHLORIDE
     Dosage: 1000 MG, 2X/DAY (500 MG, 2-0-2-0)
  9. BISOPROLOL [Concomitant]
     Active Substance: BISOPROLOL
     Dosage: 3.75 MG, 2X/DAY (3.75 MG, 1-0-1-0)
  10. CANDESARTAN. [Concomitant]
     Active Substance: CANDESARTAN
     Dosage: 8 MG, 2X/DAY (8 MG, 1-0-1-0)

REACTIONS (8)
  - Gamma-glutamyltransferase increased [Unknown]
  - Glomerular filtration rate decreased [Unknown]
  - Tremor [Recovered/Resolved]
  - Back pain [Recovered/Resolved]
  - Vomiting [Recovered/Resolved]
  - Nausea [Recovered/Resolved]
  - Abdominal pain [Recovered/Resolved]
  - Alanine aminotransferase increased [Unknown]

NARRATIVE: CASE EVENT DATE: 20200114
